FAERS Safety Report 15726180 (Version 1)
Quarter: 2018Q4

REPORT INFORMATION
  Report Type: Spontaneous
  Country: US (occurrence: US)
  Receive Date: 20181216
  Receipt Date: 20181216
  Transmission Date: 20190205
  Serious: No
  Sender: FDA-Public Use
  Company Number: US-SUPERNUS PHARMACEUTICALS, INC.-2018SUP00246

PATIENT
  Sex: Female

DRUGS (5)
  1. TROKENDI XR [Suspect]
     Active Substance: TOPIRAMATE
     Indication: MIGRAINE
     Dosage: UNK
     Dates: start: 2018, end: 2018
  2. AMITRIPTYLINE [Concomitant]
     Active Substance: AMITRIPTYLINE
  3. PROMETHAZINE [Concomitant]
     Active Substance: PROMETHAZINE\PROMETHAZINE HYDROCHLORIDE
  4. ZANAFLEX [Concomitant]
     Active Substance: TIZANIDINE HYDROCHLORIDE
  5. MOBIC [Concomitant]
     Active Substance: MELOXICAM

REACTIONS (2)
  - Aphasia [Unknown]
  - Speech disorder [Unknown]

NARRATIVE: CASE EVENT DATE: 2018
